FAERS Safety Report 5653612-1 (Version None)
Quarter: 2008Q1

REPORT INFORMATION
  Report Type: 
  Country: None (occurrence: None)
  Receive Date: 20080306
  Receipt Date: 20080303
  Transmission Date: 20080703
  Serious: Yes (Other)
  Sender: FDA-Public Use
  Company Number: US-ASTRAZENECA-2008UW04366

PATIENT
  Age: 62 Year
  Sex: Female

DRUGS (7)
  1. ARIMIDEX [Suspect]
     Indication: BREAST CANCER
     Route: 048
     Dates: start: 20060101
  2. TRAZODONE HCL [Concomitant]
  3. SERTRALINE [Concomitant]
  4. LIPITOR [Concomitant]
  5. CLONAZEPAM [Concomitant]
  6. KEPPRA [Concomitant]
  7. BLACK COHOSH [Concomitant]

REACTIONS (3)
  - BRAIN NEOPLASM [None]
  - HOT FLUSH [None]
  - LOSS OF CONSCIOUSNESS [None]
